FAERS Safety Report 5034740-0 (Version None)
Quarter: 2006Q2

REPORT INFORMATION
  Report Type: 
  Country: None (occurrence: None)
  Receive Date: 20060621
  Receipt Date: 20060608
  Transmission Date: 20061013
  Serious: Yes (Hospitalization)
  Sender: FDA-Public Use
  Company Number: HQWYE035408JUN06

PATIENT
  Age: 77 Year
  Sex: Male

DRUGS (8)
  1. CORDARONE [Suspect]
     Indication: ARRHYTHMIA
     Dosage: 200 MG TABLET, 1 UNIT DAILY ORAL
     Route: 048
  2. IXEL (MILNACIPRAN) [Suspect]
     Indication: DEPRESSION
     Dosage: ORAL
     Route: 048
  3. PREVISCAN (FLUINDIONE) [Concomitant]
     Indication: CEREBRAL THROMBOSIS
     Dosage: 20 MG TABLET, 15 MG DAILY ORAL
     Route: 048
     Dates: end: 20060225
  4. ATORVASTATIN CALCIUM [Suspect]
     Indication: HYPERCHOLESTEROLAEMIA
     Dosage: 1 UNIT DAILY ORAL
     Route: 048
  5. NEURONTIN [Concomitant]
  6. LIORESAL [Concomitant]
  7. ACARBOSE [Concomitant]
  8. IMOVANE (ZOPICLONE) [Concomitant]

REACTIONS (13)
  - ANAEMIA [None]
  - CEREBRAL ATROPHY [None]
  - CEREBROVASCULAR ACCIDENT [None]
  - DISEASE RECURRENCE [None]
  - DRUG INTERACTION [None]
  - FALL [None]
  - HAEMATOMA [None]
  - INTERNATIONAL NORMALISED RATIO INCREASED [None]
  - MUSCLE HAEMORRHAGE [None]
  - MUSCLE SPASTICITY [None]
  - PYELONEPHRITIS [None]
  - RENAL FAILURE [None]
  - RHABDOMYOLYSIS [None]
